FAERS Safety Report 12484916 (Version 1)
Quarter: 2016Q2

REPORT INFORMATION
  Report Type: Spontaneous
  Country: US (occurrence: None)
  Receive Date: 20160620
  Receipt Date: 20160620
  Transmission Date: 20160815
  Serious: No
  Sender: FDA-Public Use
  Company Number: None

PATIENT
  Age: 38 Year
  Sex: Female
  Weight: 68.04 kg

DRUGS (3)
  1. ZOLOFT [Concomitant]
     Active Substance: SERTRALINE HYDROCHLORIDE
  2. ACETAMINOPHEN. [Concomitant]
     Active Substance: ACETAMINOPHEN
  3. LEUPROLIDE ACETATE INJECTION, 14 MG SANDOZ [Suspect]
     Active Substance: LEUPROLIDE ACETATE
     Indication: INFERTILITY
     Dosage: 10 UNITS IN THE MORNING GIVEN INTO/UNDER THE SKIN
     Route: 058

REACTIONS (3)
  - Discomfort [None]
  - Restless legs syndrome [None]
  - Insomnia [None]

NARRATIVE: CASE EVENT DATE: 20160617
